FAERS Safety Report 9678912 (Version 1)
Quarter: 2013Q4

REPORT INFORMATION
  Report Type: Spontaneous
  Country: US (occurrence: US)
  Receive Date: 20131108
  Receipt Date: 20131108
  Transmission Date: 20140711
  Serious: Yes (Hospitalization)
  Sender: FDA-Public Use
  Company Number: US-TARO-2013P1020677

PATIENT
  Age: 75 Year
  Sex: Female
  Weight: 52.16 kg

DRUGS (13)
  1. WARFARIN SODIUM TABLETS USP 5MG [Suspect]
     Indication: CEREBROVASCULAR ACCIDENT
     Route: 048
     Dates: start: 201010
  2. WARFARIN SODIUM TABLETS USP 5MG [Suspect]
     Indication: CEREBROVASCULAR ACCIDENT
     Route: 048
  3. METOPROLOL ER [Suspect]
     Dates: end: 2012
  4. METOPROLOL ER [Suspect]
     Dates: start: 2012
  5. LISINOPRIL/HYDROCHLOROTHIAZIDE [Concomitant]
     Dates: start: 1988
  6. SIMVASTATIN [Concomitant]
     Dates: start: 2012
  7. POT CL MICRO ER [Concomitant]
  8. SOTALOL HCL [Concomitant]
     Dates: start: 2012
  9. CLONAZEPAM [Concomitant]
     Dates: start: 1988
  10. ASPIRIN [Concomitant]
     Dates: start: 1988
  11. CITRACAL [Concomitant]
     Dates: start: 1988
  12. AMITRIPTYLINE [Concomitant]
  13. IBUPROFEN [Concomitant]

REACTIONS (5)
  - Alopecia [Unknown]
  - Syncope [Recovered/Resolved]
  - Blood pressure decreased [Recovered/Resolved]
  - Dizziness [Recovered/Resolved]
  - Urinary incontinence [Not Recovered/Not Resolved]
